FAERS Safety Report 9608232 (Version 1)
Quarter: 2013Q4

REPORT INFORMATION
  Report Type: Spontaneous
  Country: AU (occurrence: None)
  Receive Date: 20131007
  Receipt Date: 20131007
  Transmission Date: 20140711
  Serious: Yes (Hospitalization)
  Sender: FDA-Public Use
  Company Number: 2013000263

PATIENT
  Age: 38 Year
  Sex: Male

DRUGS (1)
  1. ACEON (PERINDOPRIL ERBUMINE) [Suspect]
     Indication: ESSENTIAL HYPERTENSION
     Route: 048
     Dates: start: 20130707, end: 201307

REACTIONS (5)
  - Rash vesicular [None]
  - Oropharyngeal pain [None]
  - Erythema [None]
  - Pyrexia [None]
  - Myalgia [None]
